FAERS Safety Report 7693228-9 (Version None)
Quarter: 2011Q3

REPORT INFORMATION
  Report Type: 
  Country: None (occurrence: None)
  Receive Date: 20110819
  Receipt Date: 20110816
  Transmission Date: 20111222
  Serious: Yes (Other)
  Sender: FDA-Public Use
  Company Number: BR-PFIZER INC-2011187170

PATIENT
  Sex: Female

DRUGS (1)
  1. VARENICLINE TARTRATE [Suspect]
     Dosage: 0.5 MG, 1X/DAY (DURING THE MORNING)
     Route: 048
     Dates: start: 20110808, end: 20110811

REACTIONS (6)
  - DISTURBANCE IN ATTENTION [None]
  - MEMORY IMPAIRMENT [None]
  - DIZZINESS [None]
  - DRY MOUTH [None]
  - NIGHTMARE [None]
  - NAUSEA [None]
